FAERS Safety Report 4450688-4 (Version None)
Quarter: 2004Q3

REPORT INFORMATION
  Report Type: 
  Country: None (occurrence: None)
  Receive Date: 20040915
  Receipt Date: 20040915
  Transmission Date: 20050211
  Serious: Yes (Hospitalization)
  Sender: FDA-Public Use
  Company Number: None

PATIENT
  Age: 57 Year
  Sex: Male
  Weight: 60 kg

DRUGS (11)
  1. WARFARIN SODIUM [Suspect]
     Indication: HYPERCOAGULATION
     Dosage: ORAL
     Route: 048
     Dates: start: 19950308, end: 20040405
  2. FUROSEMIDE [Concomitant]
  3. HYDRALAZINE HCL [Concomitant]
  4. ISOSORBIDE DINITRATE [Concomitant]
  5. POTASSIUM CHLORIDE [Concomitant]
  6. PRAZOSIN HCL [Concomitant]
  7. CYANOCOBALAMIN [Concomitant]
  8. PYRIDOXINE HCL [Concomitant]
  9. ASPIRIN [Concomitant]
  10. ATENOLOL [Concomitant]
  11. FOLIC ACID [Concomitant]

REACTIONS (5)
  - ASTHENIA [None]
  - CONTUSION [None]
  - FATIGUE [None]
  - HAEMATOMA [None]
  - HAEMORRHAGE [None]
